FAERS Safety Report 16377193 (Version 1)
Quarter: 2019Q2

REPORT INFORMATION
  Report Type: Spontaneous
  Country: ES (occurrence: ES)
  Receive Date: 20190531
  Receipt Date: 20190531
  Transmission Date: 20190711
  Serious: Yes (Other)
  Sender: FDA-Public Use
  Company Number: PHHY2019ES124071

PATIENT
  Age: 3 Month
  Sex: Male
  Weight: 6.9 kg

DRUGS (2)
  1. OMEPRAZOL [Suspect]
     Active Substance: OMEPRAZOLE
     Indication: SKIN HYPERPIGMENTATION
     Dosage: 1.5 ML, Q12H
     Route: 048
     Dates: start: 20190326, end: 20190502
  2. DELTIUS [Concomitant]
     Active Substance: CHOLECALCIFEROL
     Indication: PROPHYLAXIS
     Dosage: 2 GTT, QD
     Route: 048
     Dates: start: 20190213

REACTIONS (2)
  - Hypertrichosis [Recovering/Resolving]
  - Skin hyperpigmentation [Recovering/Resolving]

NARRATIVE: CASE EVENT DATE: 20190413
